FAERS Safety Report 10203596 (Version 2)
Quarter: 2014Q3

REPORT INFORMATION
  Report Type: Spontaneous
  Country: US (occurrence: US)
  Receive Date: 20140529
  Receipt Date: 20140708
  Transmission Date: 20150326
  Serious: No
  Sender: FDA-Public Use
  Company Number: US-PFIZER INC-2014141952

PATIENT
  Sex: Male

DRUGS (2)
  1. TRUSOPT [Concomitant]
     Active Substance: DORZOLAMIDE HYDROCHLORIDE
     Dosage: UNK
  2. LATANOPROST. [Suspect]
     Active Substance: LATANOPROST
     Dosage: UNK, 1X/DAY (ONE TIME IN THE EVENING AT BEDTIME)

REACTIONS (4)
  - Musculoskeletal pain [Unknown]
  - Joint range of motion decreased [Unknown]
  - Product substitution issue [Unknown]
  - Pain [Unknown]
